FAERS Safety Report 7757529-8 (Version None)
Quarter: 2011Q3

REPORT INFORMATION
  Report Type: 
  Country: None (occurrence: None)
  Receive Date: 20110916
  Receipt Date: 20110914
  Transmission Date: 20111222
  Serious: Yes (Death)
  Sender: FDA-Public Use
  Company Number: CA-ROCHE-802689

PATIENT
  Sex: Male
  Weight: 56.2 kg

DRUGS (1)
  1. CAPECITABINE [Suspect]
     Indication: METASTASES TO LIVER
     Dosage: INTERRUPTED
     Route: 048

REACTIONS (1)
  - DEATH [None]
